FAERS Safety Report 22963789 (Version 2)
Quarter: 2023Q4

REPORT INFORMATION
  Report Type: Report from Study
  Country: US (occurrence: US)
  Receive Date: 20230921
  Receipt Date: 20231114
  Transmission Date: 20240109
  Serious: Yes (Other)
  Sender: FDA-Public Use
  Company Number: US-ABBVIE-5413480

PATIENT
  Sex: Male
  Weight: 73 kg

DRUGS (1)
  1. SKYRIZI [Suspect]
     Active Substance: RISANKIZUMAB-RZAA
     Indication: Psoriasis
     Route: 058
     Dates: start: 20230126

REACTIONS (1)
  - Ear neoplasm malignant [Recovering/Resolving]

NARRATIVE: CASE EVENT DATE: 20230101
